FAERS Safety Report 7626017-1 (Version None)
Quarter: 2011Q3

REPORT INFORMATION
  Report Type: 
  Country: None (occurrence: None)
  Receive Date: 20110713
  Receipt Date: 20110707
  Transmission Date: 20111222
  Serious: Yes (Hospitalization)
  Sender: FDA-Public Use
  Company Number: ACO_25213_2011

PATIENT
  Age: 40 Year
  Sex: Female
  Weight: 86.2 kg

DRUGS (5)
  1. TYSABRI [Concomitant]
  2. AMPYRA [Suspect]
     Indication: GAIT DISTURBANCE
     Dosage: 10 MG, SINGLE, ORAL ; 10 MG, BID,ORAL
     Route: 048
     Dates: start: 20110512, end: 20110512
  3. AMPYRA [Suspect]
     Indication: GAIT DISTURBANCE
     Dosage: 10 MG, SINGLE, ORAL ; 10 MG, BID,ORAL
     Route: 048
     Dates: start: 20110513, end: 20110516
  4. MACROBID /00024401/ (NITROFURANTOIN) [Concomitant]
  5. SANCTURA [Concomitant]

REACTIONS (5)
  - PRURITUS [None]
  - LIP SWELLING [None]
  - AURICULAR SWELLING [None]
  - URTICARIA [None]
  - INAPPROPRIATE SCHEDULE OF DRUG ADMINISTRATION [None]
